FAERS Safety Report 8115017-3 (Version None)
Quarter: 2012Q1

REPORT INFORMATION
  Report Type: 
  Country: None (occurrence: None)
  Receive Date: 20120206
  Receipt Date: 20120131
  Transmission Date: 20120608
  Serious: No
  Sender: FDA-Public Use
  Company Number: US-PFIZER INC-2012026225

PATIENT

DRUGS (2)
  1. TOVIAZ [Suspect]
     Dosage: 4 MG, DAILY FOR A WEEK
  2. TOVIAZ [Suspect]
     Dosage: 8 MG, DAILY

REACTIONS (2)
  - DRY THROAT [None]
  - DRY MOUTH [None]
